FAERS Safety Report 9798734 (Version 1)
Quarter: 2014Q1

REPORT INFORMATION
  Report Type: Spontaneous
  Country: US (occurrence: US)
  Receive Date: 20140106
  Receipt Date: 20140106
  Transmission Date: 20141002
  Serious: No
  Sender: FDA-Public Use
  Company Number: US-GILEAD-2010-0029954

PATIENT
  Sex: Male

DRUGS (7)
  1. LETAIRIS [Suspect]
     Indication: PULMONARY ARTERIAL HYPERTENSION
     Route: 048
     Dates: start: 20091207, end: 20100525
  2. NADOLOL [Concomitant]
  3. FUROSEMIDE [Concomitant]
  4. SPIRONOLACTONE [Concomitant]
  5. LACTULOSE [Concomitant]
  6. PRILOSEC [Concomitant]
  7. MULTIVITAMINS [Concomitant]

REACTIONS (2)
  - Oedema [Unknown]
  - Haemoglobin decreased [Unknown]
